FAERS Safety Report 4597350-5 (Version None)
Quarter: 2005Q1

REPORT INFORMATION
  Report Type: 
  Country: None (occurrence: None)
  Receive Date: 20050303
  Receipt Date: 20040910
  Transmission Date: 20050727
  Serious: Yes (Death, Other)
  Sender: FDA-Public Use
  Company Number: FR-BRISTOL-MYERS SQUIBB COMPANY-12699922

PATIENT
  Age: 41 Year
  Sex: Male

DRUGS (6)
  1. ZERIT [Suspect]
     Indication: HIV INFECTION
     Dosage: INITIATED AT 40 MG BID, REDUCED TO 30 MG BID ON 01-JUN-2004
     Route: 048
     Dates: start: 20040506, end: 20040830
  2. EPIVIR [Concomitant]
     Indication: HIV INFECTION
     Dates: start: 20040506
  3. KALETRA [Concomitant]
     Indication: HIV INFECTION
     Dates: start: 20040506, end: 20040601
  4. NORVIR [Concomitant]
     Indication: HIV INFECTION
     Dates: start: 20040601
  5. CRIXIVAN [Concomitant]
     Indication: HIV INFECTION
     Dates: start: 20040601
  6. VIREAD [Concomitant]
     Indication: HIV INFECTION
     Dates: start: 20040830

REACTIONS (3)
  - CYTOLYTIC HEPATITIS [None]
  - GAMMA-GLUTAMYLTRANSFERASE INCREASED [None]
  - NEOPLASM MALIGNANT [None]
